FAERS Safety Report 8414755-2 (Version None)
Quarter: 2012Q2

REPORT INFORMATION
  Report Type: 
  Country: None (occurrence: None)
  Receive Date: 20120606
  Receipt Date: 20120530
  Transmission Date: 20120825
  Serious: Yes (Hospitalization, Other)
  Sender: FDA-Public Use
  Company Number: DE-AMGEN-DEUSP2011031001

PATIENT
  Age: 23 Year
  Sex: Male
  Weight: 65 kg

DRUGS (6)
  1. TRANXILIUM [Concomitant]
     Dosage: 15 MG, UNK
     Route: 048
  2. PANTOZOL                           /01263202/ [Concomitant]
     Indication: HELICOBACTER GASTRITIS
     Route: 048
  3. VIMPAT [Suspect]
     Indication: EPILEPSY
     Route: 048
  4. KEPPRA [Concomitant]
     Indication: EPILEPSY
     Route: 048
  5. NPLATE [Suspect]
     Indication: IDIOPATHIC THROMBOCYTOPENIC PURPURA
     Dosage: UNK UNK, 2 TIMES/WK
     Route: 058
     Dates: start: 20100401
  6. LEVOTHYROXINE SODIUM [Concomitant]
     Indication: HYPERTHYROIDISM
     Route: 048

REACTIONS (3)
  - PLATELET COUNT DECREASED [None]
  - PLATELET COUNT ABNORMAL [None]
  - INHIBITORY DRUG INTERACTION [None]
